FAERS Safety Report 5240332-0 (Version None)
Quarter: 2007Q1

REPORT INFORMATION
  Report Type: 
  Country: None (occurrence: None)
  Receive Date: 20070219
  Receipt Date: 20070206
  Transmission Date: 20070707
  Serious: Yes (Hospitalization, Other)
  Sender: FDA-Public Use
  Company Number: PHEH2006US14826

PATIENT
  Age: 64 Year
  Sex: Female

DRUGS (12)
  1. DIOVAN [Suspect]
     Indication: HYPERTENSION
     Dosage: 160 MG, QD
     Route: 048
     Dates: start: 20061001, end: 20061001
  2. DIOVAN [Suspect]
     Dosage: 320 MG, QD
     Route: 048
     Dates: start: 20061001
  3. HYDROCODONE [Concomitant]
     Dosage: UNK, UNK
  4. DARVOCET-N 100 [Concomitant]
     Dosage: UNK, UNK
  5. CELEBREX [Concomitant]
     Dosage: UNK, UNK
  6. TOPROL-XL [Concomitant]
     Dosage: UNK, UNK
  7. TRIAMTERENE AND HYDROCHLOROTHIAZIDE [Concomitant]
     Dosage: UNK, UNK
  8. NEXIUM [Concomitant]
     Dosage: UNK, UNK
  9. PROBENECID [Concomitant]
     Dosage: UNK, UNK
  10. ALLOPURINOL SODIUM [Concomitant]
     Dosage: UNK, UNK
  11. PREMARIN [Concomitant]
     Dosage: UNK, UNK
  12. FLEXERIL [Concomitant]
     Dosage: UNK, UNK

REACTIONS (14)
  - ARTHROPATHY [None]
  - COUGH [None]
  - DIARRHOEA [None]
  - DIZZINESS [None]
  - FALL [None]
  - HEADACHE [None]
  - HYPERTENSION [None]
  - MUSCULOSKELETAL PAIN [None]
  - NAUSEA [None]
  - ORTHOSTATIC HYPOTENSION [None]
  - ROTATOR CUFF SYNDROME [None]
  - SURGERY [None]
  - VIRAL INFECTION [None]
  - WALKING AID USER [None]
